FAERS Safety Report 4442022-0 (Version None)
Quarter: 2004Q3

REPORT INFORMATION
  Report Type: 
  Country: None (occurrence: None)
  Receive Date: 20040901
  Receipt Date: 20040824
  Transmission Date: 20050211
  Serious: Yes (Other)
  Sender: FDA-Public Use
  Company Number: 2004229998US

PATIENT
  Age: 52 Year
  Sex: Female

DRUGS (3)
  1. PROVERA [Suspect]
     Dates: start: 19950101, end: 19971101
  2. PREMARIN [Suspect]
     Dates: start: 19950101, end: 19971101
  3. PREMPRO [Suspect]
     Dates: start: 19971101, end: 20020627

REACTIONS (1)
  - BREAST CANCER FEMALE [None]
